FAERS Safety Report 7972475-2 (Version None)
Quarter: 2011Q4

REPORT INFORMATION
  Report Type: 
  Country: None (occurrence: None)
  Receive Date: 20111213
  Receipt Date: 20111207
  Transmission Date: 20120403
  Serious: No
  Sender: FDA-Public Use
  Company Number: US-BIOGENIDEC-2011BI046508

PATIENT
  Age: 40 Year
  Sex: Female

DRUGS (4)
  1. AVONEX [Suspect]
     Route: 030
     Dates: start: 20110909
  2. AVONEX [Suspect]
     Route: 030
     Dates: start: 20110826
  3. AVONEX [Suspect]
     Indication: MULTIPLE SCLEROSIS
     Route: 030
     Dates: start: 20110819
  4. AVONEX [Suspect]
     Route: 030
     Dates: start: 20110902

REACTIONS (6)
  - VERTIGO [None]
  - FRUSTRATION [None]
  - BALANCE DISORDER [None]
  - IMPAIRED DRIVING ABILITY [None]
  - INFLUENZA LIKE ILLNESS [None]
  - MOTOR DYSFUNCTION [None]
